FAERS Safety Report 10862494 (Version 1)
Quarter: 2015Q1

REPORT INFORMATION
  Report Type: Spontaneous
  Country: US (occurrence: None)
  Receive Date: 20150219
  Receipt Date: 20150219
  Transmission Date: 20150721
  Serious: No
  Sender: FDA-Public Use
  Company Number: None

PATIENT
  Age: 67 Year
  Sex: Female

DRUGS (12)
  1. PREDNISONE. [Concomitant]
     Active Substance: PREDNISONE
  2. SIMVASTATIN. [Concomitant]
     Active Substance: SIMVASTATIN
  3. AMPYRA [Suspect]
     Active Substance: DALFAMPRIDINE
     Indication: MULTIPLE SCLEROSIS
     Route: 048
     Dates: start: 201006, end: 201007
  4. PILOCARPINE [Concomitant]
     Active Substance: PILOCARPINE
  5. ESTAVIA [Concomitant]
  6. FOSAMAX [Concomitant]
     Active Substance: ALENDRONATE SODIUM
  7. ALPHAGAN P [Concomitant]
     Active Substance: BRIMONIDINE TARTRATE
  8. FOLIC ACID. [Concomitant]
     Active Substance: FOLIC ACID
  9. XALATAN [Concomitant]
     Active Substance: LATANOPROST
  10. COSOPT [Concomitant]
     Active Substance: DORZOLAMIDE HYDROCHLORIDE\TIMOLOL MALEATE
  11. MODAFINIL. [Concomitant]
     Active Substance: MODAFINIL
  12. CALCIUM CARBONATE-VIT D3 [Concomitant]

REACTIONS (2)
  - Fatigue [None]
  - Drug ineffective [None]

NARRATIVE: CASE EVENT DATE: 20130719
